FAERS Safety Report 15304087 (Version 9)
Quarter: 2019Q3

REPORT INFORMATION
  Report Type: Report from Study
  Country: US (occurrence: US)
  Receive Date: 20180821
  Receipt Date: 20190704
  Transmission Date: 20191004
  Serious: Yes (Other)
  Sender: FDA-Public Use
  Company Number: US-AMGEN INC.-USASL2018105363

PATIENT
  Age: 42 Year
  Sex: Female

DRUGS (23)
  1. MAGNESIUM [Concomitant]
     Active Substance: MAGNESIUM
     Indication: MIGRAINE
     Dosage: 50 MILLIGRAM
  2. AIMOVIG [Suspect]
     Active Substance: ERENUMAB-AOOE
     Dosage: 140 MILLIGRAM, QMO
     Route: 065
  3. ONDANSETRON [Concomitant]
     Active Substance: ONDANSETRON
     Indication: NAUSEA
     Dosage: 8 MILLIGRAM, TID
  4. DEXTROAMPHETAMINE [DEXAMFETAMINE] [Concomitant]
     Active Substance: DEXTROAMPHETAMINE
     Indication: ATTENTION DEFICIT/HYPERACTIVITY DISORDER
     Dosage: 2 MORNING 1 AT NOON 1 AT 4PM
  5. CYCLOBENZAPRINE. [Concomitant]
     Active Substance: CYCLOBENZAPRINE
     Indication: MIGRAINE
  6. METOPROLOL. [Concomitant]
     Active Substance: METOPROLOL
     Indication: MIGRAINE
     Dosage: 150 MILLIGRAM, X2 IN MORNING
  7. ZOMIG [Concomitant]
     Active Substance: ZOLMITRIPTAN
     Dosage: 5 MILLIGRAM, AS NECESSARY, 2 PER WEEK LIMIT
     Route: 060
  8. DULOXETINE DR [Concomitant]
     Active Substance: DULOXETINE
     Indication: MAJOR DEPRESSION
     Dosage: 60 MILLIGRAM, 2, EVERY MORNING
     Route: 048
  9. AIMOVIG [Suspect]
     Active Substance: ERENUMAB-AOOE
     Dosage: 140 MILLIGRAM, QMO
     Route: 065
  10. LAMOTRIGINE. [Concomitant]
     Active Substance: LAMOTRIGINE
     Indication: AFFECTIVE DISORDER
     Dosage: 150 MILLIGRAM, 1 NIGHTLY
  11. AIMOVIG [Suspect]
     Active Substance: ERENUMAB-AOOE
     Indication: MIGRAINE PROPHYLAXIS
     Dosage: 140 MILLIGRAM, QMO
     Route: 065
     Dates: start: 20180721
  12. NARATRIPTAN [Concomitant]
     Active Substance: NARATRIPTAN HYDROCHLORIDE
     Dosage: UNK UNK, AS NECESSARY
  13. HYDROXYCHLOROQUINE [Concomitant]
     Active Substance: HYDROXYCHLOROQUINE
     Indication: SYSTEMIC LUPUS ERYTHEMATOSUS
     Dosage: 200 MILLIGRAM, QD, 2
  14. XIIDRA [Concomitant]
     Active Substance: LIFITEGRAST
     Indication: DRY EYE
     Dosage: UNK UNK, QD,  OPTHALMIC  SOLUTION 2X
  15. BOTOX [Concomitant]
     Active Substance: ONABOTULINUMTOXINA
     Dosage: 200 MILLIGRAM, EVERY 3 MONTHS
  16. DULOXETINE DR [Concomitant]
     Active Substance: DULOXETINE
     Indication: ANXIETY
  17. DICLOFENAC SODIUM. [Concomitant]
     Active Substance: DICLOFENAC SODIUM
     Indication: FIBROMYALGIA
     Dosage: 1%
     Route: 061
  18. TOPAMAX [Concomitant]
     Active Substance: TOPIRAMATE
     Indication: MIGRAINE
     Dosage: 25 MILLIGRAM, X4 AT NIGHT
  19. CYCLOBENZAPRINE. [Concomitant]
     Active Substance: CYCLOBENZAPRINE
     Indication: FIBROMYALGIA
     Dosage: 10 MILLIGRAM, AS NECESSARY, 1 X 3 DAILY
  20. PROMETHAZINE [Concomitant]
     Active Substance: PROMETHAZINE HYDROCHLORIDE
     Indication: NAUSEA
     Dosage: 50 MILLIGRAM, AS NECESSARY, 1X3
  21. INDOCIN [Concomitant]
     Active Substance: INDOMETHACIN
     Indication: MIGRAINE
     Dosage: 50 MILLIGRAM, EVERY 12 HRS LIMITED TO TWO DAYS A WEEK
  22. CLONAZEPAM. [Concomitant]
     Active Substance: CLONAZEPAM
     Indication: ANXIETY DISORDER
     Dosage: 2 MILLIGRAM, QD, 3
  23. LEVOTHYROXINE. [Concomitant]
     Active Substance: LEVOTHYROXINE
     Indication: AUTOIMMUNE THYROIDITIS
     Dosage: 0.1 MILLIGRAM, QD

REACTIONS (27)
  - Insomnia [Recovering/Resolving]
  - Migraine [Not Recovered/Not Resolved]
  - Asthenia [Unknown]
  - Arthropathy [Unknown]
  - Dry eye [Unknown]
  - Fluid intake reduced [Unknown]
  - Syncope [Unknown]
  - Logorrhoea [Not Recovered/Not Resolved]
  - Gait inability [Recovering/Resolving]
  - Injection site haemorrhage [Recovering/Resolving]
  - Sciatica [Recovering/Resolving]
  - Mass [Unknown]
  - Product dose omission [Unknown]
  - Eating disorder [Unknown]
  - Abnormal dreams [Unknown]
  - Neuralgia [Unknown]
  - Dysarthria [Not Recovered/Not Resolved]
  - Dry mouth [Unknown]
  - Pyrexia [Unknown]
  - Wrong technique in product usage process [Unknown]
  - Fibromyalgia [Recovering/Resolving]
  - Loss of personal independence in daily activities [Unknown]
  - Constipation [Unknown]
  - Adverse event [Unknown]
  - Fatigue [Recovering/Resolving]
  - Injection site pain [Recovered/Resolved]
  - Lack of injection site rotation [Unknown]

NARRATIVE: CASE EVENT DATE: 2018
